FAERS Safety Report 6188146-1 (Version None)
Quarter: 2009Q2

REPORT INFORMATION
  Report Type: 
  Country: None (occurrence: None)
  Receive Date: 20090513
  Receipt Date: 20080709
  Transmission Date: 20091009
  Serious: No
  Sender: FDA-Public Use
  Company Number: A0736947A

PATIENT
  Age: 65 Year
  Sex: Female

DRUGS (3)
  1. DYNACIRC CR [Suspect]
     Indication: HYPERTENSION
     Dosage: 5MG PER DAY
     Route: 048
     Dates: start: 20080101
  2. LIPITOR [Concomitant]
  3. VITAMINS [Concomitant]

REACTIONS (6)
  - ABDOMINAL DISTENSION [None]
  - ABDOMINAL PAIN UPPER [None]
  - ARTHRALGIA [None]
  - ARTHRITIS [None]
  - FATIGUE [None]
  - HYPERTENSION [None]
